FAERS Safety Report 6587746-4 (Version None)
Quarter: 2010Q1

REPORT INFORMATION
  Report Type: 
  Country: None (occurrence: None)
  Receive Date: 20100204
  Receipt Date: 20100128
  Transmission Date: 20100710
  Serious: Yes (Hospitalization)
  Sender: FDA-Public Use
  Company Number: OPER20100021

PATIENT
  Age: 54 Year
  Sex: Female

DRUGS (3)
  1. OPANA ER [Suspect]
     Indication: PAIN
     Dosage: BID, ORAL
     Route: 048
  2. OPANA ER [Suspect]
     Indication: PAIN
     Dosage: PRN, ORAL
     Route: 048
  3. DILANTIN [Suspect]
     Indication: CONVULSION

REACTIONS (3)
  - BALANCE DISORDER [None]
  - CONVULSION [None]
  - DRUG LEVEL INCREASED [None]
